FAERS Safety Report 6744933-X (Version None)
Quarter: 2010Q2

REPORT INFORMATION
  Report Type: 
  Country: None (occurrence: None)
  Receive Date: 20100527
  Receipt Date: 20100524
  Transmission Date: 20101027
  Serious: Yes (Other)
  Sender: FDA-Public Use
  Company Number: AU-ABBOTT-10P-008-0647139-00

PATIENT
  Age: 9 Year
  Sex: Female

DRUGS (4)
  1. SEVOFLURANE [Suspect]
     Indication: ANAESTHESIA
  2. ROCURONIUM BROMIDE [Suspect]
     Indication: ANAESTHESIA
  3. CEFOXITIN [Suspect]
     Indication: ANTIBIOTIC PROPHYLAXIS
  4. MIDAZOLAM HCL [Concomitant]
     Indication: PREMEDICATION

REACTIONS (2)
  - BRADYCARDIA [None]
  - CARDIAC ARREST [None]
